FAERS Safety Report 4602676-2 (Version None)
Quarter: 2005Q1

REPORT INFORMATION
  Report Type: 
  Country: None (occurrence: None)
  Receive Date: 20050307
  Receipt Date: 20050224
  Transmission Date: 20050727
  Serious: Yes (Other)
  Sender: FDA-Public Use
  Company Number: 2005-02-1886

PATIENT

DRUGS (2)
  1. TEMODAR [Suspect]
     Dosage: ORAL
     Route: 048
  2. TEMODAR [Suspect]

REACTIONS (1)
  - MALIGNANT MELANOMA [None]
